FAERS Safety Report 4680280-8 (Version None)
Quarter: 2005Q2

REPORT INFORMATION
  Report Type: 
  Country: None (occurrence: None)
  Receive Date: 20050601
  Receipt Date: 20050513
  Transmission Date: 20051028
  Serious: Yes (Death, Other)
  Sender: FDA-Public Use
  Company Number: US_0505117606

PATIENT
  Age: 49 Year
  Sex: Male

DRUGS (4)
  1. HUMALOG [Suspect]
     Indication: DIABETES MELLITUS
  2. HUMULIN N [Suspect]
     Indication: DIABETES MELLITUS
  3. TARKA [Concomitant]
  4. APROVEL (IRBESARTAN) [Concomitant]

REACTIONS (22)
  - ASPIRATION [None]
  - ATELECTASIS [None]
  - BRAIN OEDEMA [None]
  - BRAIN STEM HAEMORRHAGE [None]
  - CARDIAC FAILURE [None]
  - CARDIOMEGALY [None]
  - CEREBRAL HAEMORRHAGE [None]
  - CYSTIC FIBROSIS PANCREATIC [None]
  - DEPRESSION [None]
  - FEELING GUILTY [None]
  - GALLBLADDER DISORDER [None]
  - GLYCOSYLATED HAEMOGLOBIN INCREASED [None]
  - INTENTIONAL MISUSE [None]
  - LOSS OF CONSCIOUSNESS [None]
  - MENTAL DISORDER [None]
  - PULMONARY CONGESTION [None]
  - PULMONARY OEDEMA [None]
  - PYELONEPHRITIS CHRONIC [None]
  - RENAL VESSEL DISORDER [None]
  - RESTRICTIVE CARDIOMYOPATHY [None]
  - SUICIDAL IDEATION [None]
  - WOUND [None]
